FAERS Safety Report 7538557-4 (Version None)
Quarter: 2011Q2

REPORT INFORMATION
  Report Type: 
  Country: None (occurrence: None)
  Receive Date: 20110610
  Receipt Date: 20110531
  Transmission Date: 20111010
  Serious: Yes (Death, Hospitalization)
  Sender: FDA-Public Use
  Company Number: BR-BIOGENIDEC-2011BI020158

PATIENT
  Age: 57 Year
  Sex: Female

DRUGS (1)
  1. AVONEX [Suspect]
     Indication: MULTIPLE SCLEROSIS
     Route: 030
     Dates: start: 20040101, end: 20110515

REACTIONS (5)
  - SEPSIS [None]
  - URINARY TRACT INFECTION [None]
  - ASTHENIA [None]
  - RESPIRATORY DISTRESS [None]
  - UROSEPSIS [None]
